FAERS Safety Report 9703971 (Version 2)
Quarter: 2013Q4

REPORT INFORMATION
  Report Type: Spontaneous
  Country: US (occurrence: US)
  Receive Date: 20131122
  Receipt Date: 20131122
  Transmission Date: 20140711
  Serious: Yes (Disabling, Other)
  Sender: FDA-Public Use
  Company Number: US-SANOFI-AVENTIS-2013SA088232

PATIENT
  Age: 66 Year
  Sex: Female

DRUGS (33)
  1. LANTUS SOLOSTAR [Suspect]
     Indication: TYPE 2 DIABETES MELLITUS
     Dosage: DOSE:8 UNIT(S)
     Route: 051
     Dates: start: 201303
  2. SOLOSTAR [Concomitant]
     Dates: start: 201303
  3. KLONOPIN [Concomitant]
  4. FLEXERIL [Concomitant]
  5. CYMBALTA [Concomitant]
  6. DIOVANE [Concomitant]
  7. HYDROCODONE [Concomitant]
  8. TRAZODONE [Concomitant]
  9. NATEGLINIDE [Concomitant]
  10. K-DUR [Concomitant]
  11. GLUCOSAMINE [Concomitant]
  12. MAGNESIUM SULFATE [Concomitant]
  13. VITAMIN D [Concomitant]
  14. CITRACAL [Concomitant]
  15. ALL OTHER THERAPEUTIC PRODUCTS [Concomitant]
  16. ALL OTHER THERAPEUTIC PRODUCTS [Concomitant]
  17. BENTYL [Concomitant]
  18. ALL OTHER THERAPEUTIC PRODUCTS [Concomitant]
  19. ALL OTHER THERAPEUTIC PRODUCTS [Concomitant]
  20. BACTRIM DS [Concomitant]
  21. SEPTRA DS [Concomitant]
  22. MACROBID [Concomitant]
  23. AZITHROMYCIN [Concomitant]
  24. ALL OTHER THERAPEUTIC PRODUCTS [Concomitant]
     Indication: COUGH
  25. ALL OTHER THERAPEUTIC PRODUCTS [Concomitant]
     Indication: BACTERIAL VAGINOSIS
  26. ALL OTHER THERAPEUTIC PRODUCTS [Concomitant]
     Indication: FUNGAL INFECTION
  27. LACTAID [Concomitant]
  28. KCL [Concomitant]
     Indication: MUSCLE SPASMS
  29. LACTOBACILLUS ACIDOPHILUS [Concomitant]
  30. SENOKOT /UNK/ [Concomitant]
     Indication: CONSTIPATION
  31. NASAL SPRAY [Concomitant]
     Indication: SINUS DISORDER
  32. ALL OTHER THERAPEUTIC PRODUCTS [Concomitant]
  33. NYSTATIN [Concomitant]
     Indication: FUNGAL INFECTION

REACTIONS (36)
  - Nervous system disorder [Not Recovered/Not Resolved]
  - Brain injury [Not Recovered/Not Resolved]
  - Convulsion [Not Recovered/Not Resolved]
  - Insomnia [Not Recovered/Not Resolved]
  - Myoclonus [Not Recovered/Not Resolved]
  - Neuropathy peripheral [Not Recovered/Not Resolved]
  - Paralysis [Not Recovered/Not Resolved]
  - Balance disorder [Not Recovered/Not Resolved]
  - Altered visual depth perception [Not Recovered/Not Resolved]
  - Dyslexia [Not Recovered/Not Resolved]
  - Disability [Not Recovered/Not Resolved]
  - Blindness [Not Recovered/Not Resolved]
  - Loss of consciousness [Not Recovered/Not Resolved]
  - Rotator cuff syndrome [Not Recovered/Not Resolved]
  - Hypokinesia [Not Recovered/Not Resolved]
  - Pain [Not Recovered/Not Resolved]
  - Tendon rupture [Not Recovered/Not Resolved]
  - Tendon disorder [Not Recovered/Not Resolved]
  - Condition aggravated [Not Recovered/Not Resolved]
  - Myalgia [Not Recovered/Not Resolved]
  - Muscular weakness [Not Recovered/Not Resolved]
  - Grip strength decreased [Not Recovered/Not Resolved]
  - Arthralgia [Not Recovered/Not Resolved]
  - Joint stiffness [Not Recovered/Not Resolved]
  - Musculoskeletal discomfort [Not Recovered/Not Resolved]
  - Abdominal distension [Not Recovered/Not Resolved]
  - Abdominal discomfort [Not Recovered/Not Resolved]
  - Inflammation [Not Recovered/Not Resolved]
  - Gastrointestinal disorder [Not Recovered/Not Resolved]
  - Burning sensation [Not Recovered/Not Resolved]
  - Ear disorder [Not Recovered/Not Resolved]
  - Dehydration [Not Recovered/Not Resolved]
  - Alopecia [Not Recovered/Not Resolved]
  - Loose tooth [Not Recovered/Not Resolved]
  - Blood glucose fluctuation [Not Recovered/Not Resolved]
  - Drug ineffective [Not Recovered/Not Resolved]
